FAERS Safety Report 8276759-2 (Version None)
Quarter: 2012Q2

REPORT INFORMATION
  Report Type: 
  Country: None (occurrence: None)
  Receive Date: 20120405
  Receipt Date: 20120330
  Transmission Date: 20120825
  Serious: Yes (Hospitalization)
  Sender: FDA-Public Use
  Company Number: 2012SP016991

PATIENT
  Age: 32 Year
  Sex: Male
  Weight: 66.5 kg

DRUGS (5)
  1. ASENAPINE (ASENAPINE /05706901/) [Suspect]
     Indication: CONDITION AGGRAVATED
     Dosage: 5 MG;BID;SL
     Route: 060
     Dates: start: 20120210, end: 20120322
  2. ASENAPINE (ASENAPINE /05706901/) [Suspect]
     Indication: SCHIZOPHRENIA
     Dosage: 5 MG;BID;SL
     Route: 060
     Dates: start: 20120210, end: 20120322
  3. APO-ZOPICLONE [Concomitant]
  4. CHRLOPHENIRAMINE [Concomitant]
  5. MAGNESIUM OXIDE [Concomitant]

REACTIONS (2)
  - CONDITION AGGRAVATED [None]
  - SCHIZOPHRENIA [None]
